FAERS Safety Report 4406652-4 (Version None)
Quarter: 2004Q3

REPORT INFORMATION
  Report Type: 
  Country: None (occurrence: None)
  Receive Date: 20040720
  Receipt Date: 20040708
  Transmission Date: 20050211
  Serious: Yes (Hospitalization, Other)
  Sender: FDA-Public Use
  Company Number: GBWYE661324MAR04

PATIENT
  Age: 81 Year
  Sex: Female

DRUGS (10)
  1. TAZOCIN (PIPERACILLIN/TAZOBACTAM, INJECTION) [Suspect]
     Indication: DIVERTICULITIS
     Dosage: 4.5 MG 3X PER 1 DAY INTRAVENOUS
     Route: 042
     Dates: start: 20040313, end: 20040319
  2. GLICLAZIDE (GLICLAZIDE) [Concomitant]
  3. ASPIRIN [Concomitant]
  4. LANSOPRAZOLE [Concomitant]
  5. RAMIPRIL [Concomitant]
  6. SIMVASTATIN [Concomitant]
  7. WARFARIN (WARFARIN) [Concomitant]
  8. ISOSORBIDE MONONITRATE [Concomitant]
  9. FUROSEMIDE [Concomitant]
  10. METOPROLOL (METOPROLOL) [Concomitant]

REACTIONS (4)
  - ACUTE PULMONARY OEDEMA [None]
  - NAUSEA [None]
  - TROPONIN T INCREASED [None]
  - VOMITING [None]
